FAERS Safety Report 12976827 (Version 1)
Quarter: 2016Q4

REPORT INFORMATION
  Report Type: Spontaneous
  Country: DE (occurrence: DE)
  Receive Date: 20161128
  Receipt Date: 20161128
  Transmission Date: 20170207
  Serious: Yes (Other)
  Sender: FDA-Public Use
  Company Number: PHHY2016DE159499

PATIENT
  Sex: Male

DRUGS (2)
  1. GLIVEC [Suspect]
     Active Substance: IMATINIB MESYLATE
     Indication: GLIOBLASTOMA
     Dosage: 400 MG, QD
     Route: 065
  2. LITALIR [Concomitant]
     Active Substance: HYDROXYUREA
     Indication: GLIOBLASTOMA
     Route: 065

REACTIONS (2)
  - Cartilage injury [Unknown]
  - Product use issue [Unknown]
